FAERS Safety Report 4982624-6 (Version None)
Quarter: 2006Q2

REPORT INFORMATION
  Report Type: 
  Country: None (occurrence: None)
  Receive Date: 20060419
  Receipt Date: 20060406
  Transmission Date: 20061013
  Serious: Yes (Death)
  Sender: FDA-Public Use
  Company Number: 2006048737

PATIENT
  Age: 14 Year
  Sex: Male

DRUGS (4)
  1. DIPHENHYDRAMINE HCL [Suspect]
     Indication: SUICIDE ATTEMPT
  2. ACETAMINOPHEN [Suspect]
     Indication: SUICIDE ATTEMPT
  3. FLUVOXAMINE MALEATE [Suspect]
     Indication: SUICIDE ATTEMPT
  4. QUETIAPINE FUMARATE [Suspect]
     Indication: SUICIDE ATTEMPT

REACTIONS (2)
  - COMPLETED SUICIDE [None]
  - POISONING DELIBERATE [None]
